FAERS Safety Report 11460025 (Version 1)
Quarter: 2015Q3

REPORT INFORMATION
  Report Type: Spontaneous
  Country: US (occurrence: US)
  Receive Date: 20150904
  Receipt Date: 20150904
  Transmission Date: 20151125
  Serious: Yes (Other)
  Sender: FDA-Public Use
  Company Number: US-TAKEDA-2015TUS011554

PATIENT
  Age: 37 Year
  Sex: Male
  Weight: 77.98 kg

DRUGS (2)
  1. ACTOS [Suspect]
     Active Substance: PIOGLITAZONE HYDROCHLORIDE
     Indication: DIABETES MELLITUS
     Dosage: 45 MG, BID
     Route: 048
     Dates: start: 2005, end: 2006
  2. ACTOS [Suspect]
     Active Substance: PIOGLITAZONE HYDROCHLORIDE
     Dosage: 45 MG, TID
     Route: 048
     Dates: start: 2006, end: 200803

REACTIONS (13)
  - Colon cancer [Recovering/Resolving]
  - Abdominal pain [Recovered/Resolved]
  - Urinary tract infection [Recovered/Resolved]
  - Gastrointestinal injury [Recovered/Resolved]
  - Penile abscess [Recovered/Resolved]
  - Urinary incontinence [Recovered/Resolved]
  - Flatulence [Unknown]
  - Mobility decreased [Recovered/Resolved]
  - Nausea [Unknown]
  - Weight decreased [Recovered/Resolved]
  - Internal haemorrhage [Recovered/Resolved]
  - Bladder cancer [Recovering/Resolving]
  - Dyspepsia [Recovered/Resolved]

NARRATIVE: CASE EVENT DATE: 200803
